FAERS Safety Report 5044044-8 (Version None)
Quarter: 2006Q2

REPORT INFORMATION
  Report Type: 
  Country: None (occurrence: None)
  Receive Date: 20060601
  Receipt Date: 20060221
  Transmission Date: 20061013
  Serious: No
  Sender: FDA-Public Use
  Company Number: 2006PV009024

PATIENT
  Age: 45 Year
  Sex: Female
  Weight: 93.441 kg

DRUGS (3)
  1. BYETTA [Suspect]
     Indication: INSULIN RESISTANCE
     Dosage: SEE IMAGE
     Route: 058
     Dates: start: 20051227, end: 20060125
  2. BYETTA [Suspect]
     Indication: INSULIN RESISTANCE
     Dosage: SEE IMAGE
     Route: 058
     Dates: start: 20060126
  3. GLUCOPHAGE [Concomitant]

REACTIONS (3)
  - FLATULENCE [None]
  - HEADACHE [None]
  - WEIGHT DECREASED [None]
